FAERS Safety Report 5162054-7 (Version None)
Quarter: 2006Q4

REPORT INFORMATION
  Report Type: 
  Country: None (occurrence: None)
  Receive Date: 20061121
  Receipt Date: 20061113
  Transmission Date: 20070319
  Serious: Yes (Other)
  Sender: FDA-Public Use
  Company Number: 220001M06CHE

PATIENT
  Sex: Male

DRUGS (1)
  1. SAIZEN [Suspect]
     Dates: end: 20050101

REACTIONS (2)
  - ASTHENIA [None]
  - SYNCOPE [None]
